FAERS Safety Report 5625737-8 (Version None)
Quarter: 2008Q1

REPORT INFORMATION
  Report Type: 
  Country: None (occurrence: None)
  Receive Date: 20080207
  Receipt Date: 20080207
  Transmission Date: 20080703
  Serious: Yes (Hospitalization)
  Sender: FDA-Public Use
  Company Number: None

PATIENT
  Age: 79 Year
  Sex: Male
  Weight: 67.1324 kg

DRUGS (2)
  1. LEVAQUIN [Suspect]
     Indication: SEPSIS
     Dosage: 750MG X1 IV
     Route: 042
     Dates: start: 20080131, end: 20080131
  2. LEVAQUIN [Suspect]
     Indication: URINARY TRACT INFECTION
     Dosage: 750MG X1 IV
     Route: 042
     Dates: start: 20080131, end: 20080131

REACTIONS (5)
  - CHEST PAIN [None]
  - DRUG HYPERSENSITIVITY [None]
  - INFUSION RELATED REACTION [None]
  - RESTLESSNESS [None]
  - UNRESPONSIVE TO STIMULI [None]
